FAERS Safety Report 9398690 (Version 1)
Quarter: 2013Q3

REPORT INFORMATION
  Report Type: Spontaneous
  Country: GB (occurrence: GB)
  Receive Date: 20130712
  Receipt Date: 20130712
  Transmission Date: 20140515
  Serious: Yes (Death)
  Sender: FDA-Public Use
  Company Number: GB-RB-055889-13

PATIENT
  Age: 18 Year
  Sex: Female

DRUGS (3)
  1. SUBUTEX [Suspect]
     Indication: PRODUCT USED FOR UNKNOWN INDICATION
     Dosage: SUBOXONE FILM: DOSAGE DETAILS NOT PROVIDED
     Route: 065
     Dates: end: 20120820
  2. CANNABIS [Suspect]
     Indication: PRODUCT USED FOR UNKNOWN INDICATION
     Dosage: DOSAGE DETAILS NOT PROVIDED
     Route: 065
     Dates: end: 20120820
  3. DIAZEPAM [Suspect]
     Indication: PRODUCT USED FOR UNKNOWN INDICATION
     Dosage: DOSAGE DETAILS NOT PROVIDED
     Route: 065
     Dates: start: 20120820, end: 20120820

REACTIONS (4)
  - Wrong technique in drug usage process [Recovered/Resolved]
  - Heart rate irregular [Recovered/Resolved]
  - Drug abuse [Recovered/Resolved]
  - Death [Fatal]
